FAERS Safety Report 18697173 (Version 1)
Quarter: 2021Q1

REPORT INFORMATION
  Report Type: Report from Study
  Country: US (occurrence: US)
  Receive Date: 20210104
  Receipt Date: 20210104
  Transmission Date: 20210419
  Serious: Yes (Hospitalization)
  Sender: FDA-Public Use
  Company Number: US-GILEAD-2020-0510975

PATIENT
  Age: 27 Year
  Sex: Male

DRUGS (6)
  1. ALBUTEROL SULFATE. [Concomitant]
     Active Substance: ALBUTEROL SULFATE
  2. AQUADEKS [Concomitant]
     Active Substance: MINERALS\VITAMINS
  3. PROAIR [FLUTICASONE PROPIONATE] [Concomitant]
     Active Substance: FLUTICASONE PROPIONATE
  4. HYPERSAL [Concomitant]
     Active Substance: SODIUM CHLORIDE
  5. AZTREONAM LYSINE [Suspect]
     Active Substance: AZTREONAM LYSINE
     Indication: PRODUCT USED FOR UNKNOWN INDICATION
     Dosage: 75 MG, TID, EVERY OTHER 28 DAY PERIOD
     Route: 055
  6. ZENPEP [Concomitant]
     Active Substance: PANCRELIPASE AMYLASE\PANCRELIPASE LIPASE\PANCRELIPASE PROTEASE

REACTIONS (1)
  - Infection [Unknown]

NARRATIVE: CASE EVENT DATE: 20201228
